FAERS Safety Report 5215746-5 (Version None)
Quarter: 2007Q1

REPORT INFORMATION
  Report Type: 
  Country: None (occurrence: None)
  Receive Date: 20070116
  Receipt Date: 20061204
  Transmission Date: 20070707
  Serious: Yes (Death)
  Sender: FDA-Public Use
  Company Number: 9039997-2006-00129

PATIENT
  Sex: 0

DRUGS (1)
  1. LEVULAN [Suspect]
     Indication: NEOPLASM MALIGNANT
     Dosage: 60  MG/KG, ORAL
     Route: 048

REACTIONS (1)
  - HEPATIC CIRRHOSIS [None]
